FAERS Safety Report 5935684-X (Version None)
Quarter: 2008Q4

REPORT INFORMATION
  Report Type: 
  Country: None (occurrence: None)
  Receive Date: 20081029
  Receipt Date: 20081029
  Transmission Date: 20090506
  Serious: Yes (Death)
  Sender: FDA-Public Use
  Company Number: None

PATIENT
  Age: 45 Year
  Sex: Male
  Weight: 79.5 kg

DRUGS (6)
  1. BEVACIZUMAB GENETECH, INC [Suspect]
     Indication: GLIOBLASTOMA MULTIFORME
     Dosage: 810MG Q2WKS IV
     Route: 042
     Dates: start: 20080404, end: 20080418
  2. TEMOZOLOMIDE [Suspect]
     Indication: GLIOBLASTOMA MULTIFORME
     Dosage: 400 MG QD PO
     Route: 048
     Dates: start: 20080404, end: 20080408
  3. PRINIVIL [Concomitant]
  4. FIORICET [Concomitant]
  5. DARVON [Concomitant]
  6. FLEXERIL [Concomitant]

REACTIONS (4)
  - CONVULSION [None]
  - DISEASE PROGRESSION [None]
  - GENERAL PHYSICAL HEALTH DETERIORATION [None]
  - PAIN [None]
